FAERS Safety Report 4525153-6 (Version None)
Quarter: 2004Q4

REPORT INFORMATION
  Report Type: 
  Country: None (occurrence: None)
  Receive Date: 20041117
  Receipt Date: 20040122
  Transmission Date: 20050328
  Serious: Yes (Other)
  Sender: FDA-Public Use
  Company Number: 2004S1000272

PATIENT
  Sex: Male

DRUGS (2)
  1. CLOZAPINE [Suspect]
     Indication: SCHIZOPHRENIA
     Dosage: 100MG TID, ORAL
     Route: 048
     Dates: end: 20040114
  2. IPRATROPIUM BROMIDE/ALBUTEROL SULFATE [Concomitant]

REACTIONS (1)
  - LEUKOPENIA [None]
